FAERS Safety Report 19815073 (Version 1)
Quarter: 2021Q3

REPORT INFORMATION
  Report Type: Spontaneous
  Country: SE (occurrence: SE)
  Receive Date: 20210910
  Receipt Date: 20210910
  Transmission Date: 20211014
  Serious: Yes (Other)
  Sender: FDA-Public Use
  Company Number: SE-BAYER-2021-203863

PATIENT
  Sex: Female

DRUGS (1)
  1. KYLEENA [Suspect]
     Active Substance: LEVONORGESTREL
     Dosage: 17.5 ?G, CONT
     Route: 015
     Dates: start: 20181228

REACTIONS (7)
  - Amenorrhoea [None]
  - Abdominal pain [None]
  - Renal disorder [None]
  - Genital haemorrhage [None]
  - Device use issue [None]
  - Complication of device insertion [None]
  - Urinary tract infection [None]

NARRATIVE: CASE EVENT DATE: 20181128
